FAERS Safety Report 4518263-0 (Version None)
Quarter: 2004Q4

REPORT INFORMATION
  Report Type: 
  Country: None (occurrence: None)
  Receive Date: 20041130
  Receipt Date: 20041117
  Transmission Date: 20050328
  Serious: Yes (Death)
  Sender: FDA-Public Use
  Company Number: 2004-BP-11949BP

PATIENT
  Sex: 0

DRUGS (1)
  1. CATAPRES [Suspect]

REACTIONS (1)
  - DEATH [None]
